FAERS Safety Report 19838569 (Version 2)
Quarter: 2021Q3

REPORT INFORMATION
  Report Type: Report from Study
  Country: EG (occurrence: EG)
  Receive Date: 20210916
  Receipt Date: 20210921
  Transmission Date: 20211014
  Serious: Yes (Other)
  Sender: FDA-Public Use
  Company Number: NVSC2021EG206768

PATIENT
  Age: 47 Year
  Sex: Female

DRUGS (6)
  1. IBRANCE [Concomitant]
     Active Substance: PALBOCICLIB
     Indication: PRODUCT USED FOR UNKNOWN INDICATION
     Dosage: 1 DF, QD (FOR 20 DAYS ON AND THEN 1 WEEK OFF)
     Route: 065
     Dates: end: 202101
  2. AFINITOR [Suspect]
     Active Substance: EVEROLIMUS
     Indication: METASTASES TO LUNG
  3. AROMASIN [Concomitant]
     Active Substance: EXEMESTANE
     Indication: PRODUCT USED FOR UNKNOWN INDICATION
     Dosage: UNK
     Route: 065
     Dates: end: 202106
  4. AFINITOR [Suspect]
     Active Substance: EVEROLIMUS
     Indication: METASTASES TO LIVER
  5. AFINITOR [Suspect]
     Active Substance: EVEROLIMUS
     Indication: BREAST CANCER METASTATIC
     Dosage: 1 DF, QD
     Route: 048
     Dates: start: 202103, end: 202106
  6. AFINITOR [Suspect]
     Active Substance: EVEROLIMUS
     Indication: METASTASES TO KIDNEY

REACTIONS (9)
  - Somnolence [Recovered/Resolved]
  - Breast cancer metastatic [Recovered/Resolved]
  - Metastases to liver [Recovered/Resolved]
  - Metastases to lung [Recovered/Resolved]
  - Drug ineffective [Recovered/Resolved]
  - Malignant neoplasm progression [Recovered/Resolved]
  - Mental disorder [Recovered/Resolved]
  - Metastases to kidney [Recovered/Resolved]
  - Cough [Recovered/Resolved]

NARRATIVE: CASE EVENT DATE: 202104
